FAERS Safety Report 15395520 (Version 1)
Quarter: 2018Q3

REPORT INFORMATION
  Report Type: Spontaneous
  Country: US (occurrence: US)
  Receive Date: 20180918
  Receipt Date: 20180918
  Transmission Date: 20181010
  Serious: Yes (Hospitalization, Disabling, Other)
  Sender: FDA-Public Use
  Company Number: US-JNJFOC-20180907011

PATIENT
  Age: 51 Year
  Sex: Female

DRUGS (1)
  1. INVOKANA [Suspect]
     Active Substance: CANAGLIFLOZIN
     Indication: TYPE 2 DIABETES MELLITUS
     Route: 048
     Dates: start: 20160316

REACTIONS (8)
  - Staphylococcal sepsis [Recovering/Resolving]
  - Blister [Unknown]
  - Acute kidney injury [Recovered/Resolved]
  - Leg amputation [Unknown]
  - Metabolic acidosis [Recovered/Resolved]
  - Osteomyelitis [Unknown]
  - Cellulitis [Unknown]
  - Neuropathic arthropathy [Unknown]

NARRATIVE: CASE EVENT DATE: 201607
